FAERS Safety Report 9686319 (Version 1)
Quarter: 2013Q4

REPORT INFORMATION
  Report Type: Report from Study
  Country: CA (occurrence: CA)
  Receive Date: 20131113
  Receipt Date: 20131113
  Transmission Date: 20140711
  Serious: Yes (Other)
  Sender: FDA-Public Use
  Company Number: CA-JNJFOC-20131105091

PATIENT
  Age: 65 Year
  Sex: Female
  Weight: 60.8 kg

DRUGS (4)
  1. REMICADE [Suspect]
     Indication: RHEUMATOID ARTHRITIS
     Route: 042
     Dates: start: 200303, end: 20131106
  2. METHOTREXATE [Concomitant]
     Route: 065
  3. ASA [Concomitant]
     Route: 065
  4. RAMIPRIL [Concomitant]
     Route: 065

REACTIONS (3)
  - Heart rate irregular [Unknown]
  - Heart rate decreased [Unknown]
  - Nervousness [Unknown]
